FAERS Safety Report 13598974 (Version 1)
Quarter: 2017Q2

REPORT INFORMATION
  Report Type: Spontaneous
  Country: US (occurrence: US)
  Receive Date: 20170531
  Receipt Date: 20170531
  Transmission Date: 20170830
  Serious: No
  Sender: FDA-Public Use
  Company Number: US-009507513-1705USA013156

PATIENT

DRUGS (1)
  1. DIFICID [Suspect]
     Active Substance: FIDAXOMICIN
     Dosage: UNK
     Route: 048

REACTIONS (6)
  - Blood lactic acid increased [Unknown]
  - White blood cell count increased [Unknown]
  - Discomfort [Unknown]
  - General physical health deterioration [Unknown]
  - Malaise [Unknown]
  - Faeces soft [Unknown]
